FAERS Safety Report 9220171 (Version 1)
Quarter: 2013Q2

REPORT INFORMATION
  Report Type: Spontaneous
  Country: IT (occurrence: IT)
  Receive Date: 20130409
  Receipt Date: 20130409
  Transmission Date: 20140414
  Serious: Yes (Hospitalization)
  Sender: FDA-Public Use
  Company Number: IT-PFIZER INC-2013108008

PATIENT
  Age: 65 Year
  Sex: Female
  Weight: 70 kg

DRUGS (3)
  1. LEVOFLOXACIN [Suspect]
     Indication: ENTEROBACTER TEST POSITIVE
     Dosage: 750 MG, 1X/DAY
     Route: 042
     Dates: start: 20130301, end: 20130326
  2. VANCOMYCIN HCL [Suspect]
     Indication: ENTEROBACTER TEST POSITIVE
     Dosage: 2 G, 1X/DAY
     Route: 042
     Dates: start: 20130301, end: 20130326
  3. RIFADIN [Suspect]
     Indication: ENTEROBACTER TEST POSITIVE
     Dosage: 600 MG, 2X/DAY
     Dates: start: 20130301, end: 20130326

REACTIONS (3)
  - Erythema multiforme [Recovering/Resolving]
  - Laryngeal oedema [Recovering/Resolving]
  - Urticaria [Recovering/Resolving]
